FAERS Safety Report 22199648 (Version 1)
Quarter: 2023Q2

REPORT INFORMATION
  Report Type: Spontaneous
  Country: GB (occurrence: GB)
  Receive Date: 20230412
  Receipt Date: 20230412
  Transmission Date: 20230722
  Serious: Yes (Other)
  Sender: FDA-Public Use
  Company Number: GB-MHRA-TPP1775040C6120178YC1680164746676

PATIENT
  Age: 48 Year
  Sex: Female
  Weight: 66 kg

DRUGS (5)
  1. TRAZODONE HYDROCHLORIDE [Suspect]
     Active Substance: TRAZODONE HYDROCHLORIDE
     Indication: Adjustment disorder with mixed anxiety and depressed mood
     Dosage: UNK
     Route: 048
     Dates: start: 20230321, end: 20230329
  2. ESTRADIOL [Concomitant]
     Active Substance: ESTRADIOL
     Indication: Ill-defined disorder
     Dosage: UNK,APPLY TWICE WEEKLY
     Route: 065
     Dates: start: 20220426
  3. LANSOPRAZOLE [Concomitant]
     Active Substance: LANSOPRAZOLE
     Indication: Ill-defined disorder
     Dosage: TAKE ONE ONCE DAILY
     Route: 065
     Dates: start: 20220426
  4. Vagirux [Concomitant]
     Indication: Ill-defined disorder
     Dosage: INSERT ONE PESSARY INTO THE VAGINA TWICE A WEEK...
     Route: 065
     Dates: start: 20220531
  5. QUETIAPINE [Concomitant]
     Active Substance: QUETIAPINE
     Indication: Ill-defined disorder
     Dosage: UNK , TWO TIMES A DAY
     Route: 065
     Dates: start: 20220606

REACTIONS (2)
  - Electrocardiogram abnormal [Unknown]
  - Palpitations [Unknown]

NARRATIVE: CASE EVENT DATE: 20230329
